FAERS Safety Report 17348269 (Version 2)
Quarter: 2020Q1

REPORT INFORMATION
  Report Type: Spontaneous
  Country: US (occurrence: US)
  Receive Date: 20200130
  Receipt Date: 20200213
  Transmission Date: 20200409
  Serious: No
  Sender: FDA-Public Use
  Company Number: US-PFIZER INC-2020039146

PATIENT
  Age: 53 Year
  Sex: Male
  Weight: 74.84 kg

DRUGS (5)
  1. ZOLOFT [Suspect]
     Active Substance: SERTRALINE HYDROCHLORIDE
     Indication: DEPRESSION
     Dosage: 50 MG, 1X/DAY [50MG ONCE DAILY BY MOUTH   ]
     Route: 048
     Dates: start: 1998
  2. ALPRAZOLAM. [Concomitant]
     Active Substance: ALPRAZOLAM
     Indication: SLEEP DISORDER
     Dosage: 50 MG, 1X/DAY (50MG AT BEDTIME)
  3. SERTRALINE HCL [Suspect]
     Active Substance: SERTRALINE HYDROCHLORIDE
     Indication: ANXIETY
     Dosage: 200 MG, 1X/DAY STARTED AT 50MG ONCE DAILY AND WENT ALL THE WAY UP TO 200MG ONCE DAILY
  4. ZOLOFT [Suspect]
     Active Substance: SERTRALINE HYDROCHLORIDE
     Indication: ANXIETY
  5. SERTRALINE HCL [Suspect]
     Active Substance: SERTRALINE HYDROCHLORIDE
     Indication: DEPRESSION
     Dosage: [50 MG, UNK [STARTED AT 50MG ONCE DAILY AND WENT ALL THE WAY UP TO 200MG ONCE DAILY   ]
     Dates: start: 201802

REACTIONS (2)
  - Dry mouth [Unknown]
  - Vision blurred [Unknown]
